FAERS Safety Report 18160416 (Version 8)
Quarter: 2024Q1

REPORT INFORMATION
  Report Type: Spontaneous
  Country: US (occurrence: US)
  Receive Date: 20200817
  Receipt Date: 20240327
  Transmission Date: 20240410
  Serious: No
  Sender: FDA-Public Use
  Company Number: US-PFIZER INC-2020309755

PATIENT
  Age: 72 Year
  Sex: Female

DRUGS (3)
  1. IBRANCE [Suspect]
     Active Substance: PALBOCICLIB
     Dosage: 125 MG
  2. IBRANCE [Suspect]
     Active Substance: PALBOCICLIB
     Dosage: 5 DAYS A WEEK FOR THREE WEEKS AND THEN OFF FOR A WEEK AND THEN START AGAIN
     Route: 048
  3. IBRANCE [Suspect]
     Active Substance: PALBOCICLIB
     Dosage: TAKE 1 (ONE) TABLET BY MOUTH IN THE MORNING 3 WEEKS ON AND ONE WEEK OFF
     Route: 048

REACTIONS (4)
  - Blood test abnormal [Unknown]
  - Product storage error [Unknown]
  - Off label use [Unknown]
  - Back pain [Unknown]
